FAERS Safety Report 15584714 (Version 2)
Quarter: 2018Q4

REPORT INFORMATION
  Report Type: Spontaneous
  Country: US (occurrence: US)
  Receive Date: 20181102
  Receipt Date: 20181211
  Transmission Date: 20190205
  Serious: Yes (Hospitalization, Other)
  Sender: FDA-Public Use
  Company Number: US-B.I. PHARMACEUTICALS,INC./RIDGEFIELD-2018-BI-052931

PATIENT
  Sex: Female

DRUGS (4)
  1. LANTUS [Concomitant]
     Active Substance: INSULIN GLARGINE
     Indication: DIABETES MELLITUS
     Route: 065
  2. BASAGLAR [Suspect]
     Active Substance: INSULIN GLARGINE
     Indication: DIABETES MELLITUS
     Route: 058
  3. JARDIANCE [Suspect]
     Active Substance: EMPAGLIFLOZIN
     Indication: DIABETES MELLITUS
     Route: 065
  4. HUMALOG [Suspect]
     Active Substance: INSULIN LISPRO
     Indication: DIABETES MELLITUS
     Dosage: 5 TO 30 UNITS, 3 TIMES DAILY
     Route: 058

REACTIONS (8)
  - Renal failure [Recovered/Resolved]
  - Blood glucose abnormal [Recovering/Resolving]
  - Heart valve replacement [Recovering/Resolving]
  - Aortic aneurysm [Recovered/Resolved]
  - Fall [Recovering/Resolving]
  - Blindness [Not Recovered/Not Resolved]
  - Drug ineffective [Recovering/Resolving]
  - Lung disorder [Recovering/Resolving]
